FAERS Safety Report 8151845-6 (Version None)
Quarter: 2012Q1

REPORT INFORMATION
  Report Type: 
  Country: None (occurrence: None)
  Receive Date: 20120221
  Receipt Date: 20120209
  Transmission Date: 20120608
  Serious: No
  Sender: FDA-Public Use
  Company Number: US-BIOGENIDEC-2012BI005522

PATIENT
  Sex: Female

DRUGS (2)
  1. TYSABRI [Suspect]
     Indication: RELAPSING-REMITTING MULTIPLE SCLEROSIS
     Route: 042
     Dates: start: 20090921
  2. MEDICATION (NOS) [Concomitant]

REACTIONS (6)
  - PAIN [None]
  - SEROTONIN SYNDROME [None]
  - CENTRAL NERVOUS SYSTEM LESION [None]
  - PALPITATIONS [None]
  - HEADACHE [None]
  - COGNITIVE DISORDER [None]
